FAERS Safety Report 5500353-7 (Version None)
Quarter: 2007Q4

REPORT INFORMATION
  Report Type: 
  Country: None (occurrence: None)
  Receive Date: 20071025
  Receipt Date: 20071012
  Transmission Date: 20080405
  Serious: Yes (Disabling)
  Sender: FDA-Public Use
  Company Number: S07-FRA-05352-01

PATIENT
  Age: 63 Year
  Sex: Female
  Weight: 50 kg

DRUGS (8)
  1. MEMANTINE HCL [Suspect]
     Indication: DEMENTIA ALZHEIMER'S TYPE
     Dosage: 5 MG QD PO
     Route: 048
     Dates: start: 20070815, end: 20070821
  2. MEMANTINE HCL [Suspect]
     Indication: DISEASE PROGRESSION
     Dosage: 5 MG QD PO
     Route: 048
     Dates: start: 20070815, end: 20070821
  3. MEMANTINE HCL [Suspect]
     Indication: DEMENTIA ALZHEIMER'S TYPE
     Dosage: 10M MG QD PO
     Route: 048
     Dates: start: 20070822, end: 20070828
  4. MEMANTINE HCL [Suspect]
     Indication: DISEASE PROGRESSION
     Dosage: 10M MG QD PO
     Route: 048
     Dates: start: 20070822, end: 20070828
  5. EXELON [Concomitant]
  6. MIRTAZAPINE [Concomitant]
  7. XANAX [Concomitant]
  8. RISPERDAL [Concomitant]

REACTIONS (6)
  - ABNORMAL BEHAVIOUR [None]
  - AGGRESSION [None]
  - AGITATION [None]
  - CRYING [None]
  - DELIRIUM [None]
  - HALLUCINATION, VISUAL [None]
